FAERS Safety Report 23999337 (Version 1)
Quarter: 2024Q2

REPORT INFORMATION
  Report Type: Spontaneous
  Country: US (occurrence: US)
  Receive Date: 20240621
  Receipt Date: 20240621
  Transmission Date: 20240715
  Serious: Yes (Hospitalization, Other)
  Sender: FDA-Public Use
  Company Number: US-SUN PHARMACEUTICAL INDUSTRIES LTD-2024R1-451663

PATIENT
  Age: 18 Year
  Sex: Male

DRUGS (4)
  1. ERGOCALCIFEROL [Suspect]
     Active Substance: ERGOCALCIFEROL
     Indication: Hypocalcaemia
     Dosage: 50000 INTERNATIONAL UNIT, WEEKLY
     Route: 065
  2. CALCITRIOL [Suspect]
     Active Substance: CALCITRIOL
     Indication: Hypocalcaemia
     Dosage: 1 MCG, BID
     Route: 048
  3. SEVELAMER [Suspect]
     Active Substance: SEVELAMER
     Indication: Blood phosphorus increased
     Dosage: 1600 MILLIGRAM, TID
     Route: 065
  4. CALCIUM CARBONATE [Suspect]
     Active Substance: CALCIUM CARBONATE
     Indication: Hypocalcaemia
     Dosage: 1500 MILLIGRAM, TID
     Route: 048

REACTIONS (2)
  - Glomerulonephritis membranoproliferative [Unknown]
  - C3 glomerulopathy [Unknown]
